FAERS Safety Report 4682338-6 (Version None)
Quarter: 2005Q2

REPORT INFORMATION
  Report Type: 
  Country: None (occurrence: None)
  Receive Date: 20050531
  Receipt Date: 20050215
  Transmission Date: 20051028
  Serious: No
  Sender: FDA-Public Use
  Company Number: 2005BI003427

PATIENT
  Sex: Male

DRUGS (3)
  1. AMEVIVE [Suspect]
     Indication: PSORIASIS
     Dates: start: 20041221, end: 20050201
  2. ATACAND [Concomitant]
  3. PREDNISONE TAB [Concomitant]

REACTIONS (2)
  - BACK PAIN [None]
  - IMPAIRED HEALING [None]
